FAERS Safety Report 21871795 (Version 1)
Quarter: 2023Q1

REPORT INFORMATION
  Report Type: Spontaneous
  Country: IN (occurrence: IN)
  Receive Date: 20230117
  Receipt Date: 20230117
  Transmission Date: 20230417
  Serious: Yes (Other)
  Sender: FDA-Public Use
  Company Number: IN-GLAXOSMITHKLINE-INCH2023GSK002366

PATIENT

DRUGS (2)
  1. DICLOFENAC SODIUM [Suspect]
     Active Substance: DICLOFENAC SODIUM
     Indication: Pain
     Dosage: UNK
  2. CEPHALEXIN [Suspect]
     Active Substance: CEPHALEXIN
     Indication: Tooth extraction
     Dosage: UNK

REACTIONS (7)
  - Erythema multiforme [Recovered/Resolved]
  - Oral discomfort [Recovered/Resolved]
  - Eating disorder [Recovered/Resolved]
  - Dysphagia [Recovered/Resolved]
  - Mouth ulceration [Recovered/Resolved]
  - Lip ulceration [Recovered/Resolved]
  - Blister [Recovered/Resolved]
